FAERS Safety Report 8623747-X (Version None)
Quarter: 2012Q3

REPORT INFORMATION
  Report Type: 
  Country: None (occurrence: None)
  Receive Date: 20120827
  Receipt Date: 20120822
  Transmission Date: 20120928
  Serious: Yes (Death, Congenital Anomaly, Other)
  Sender: FDA-Public Use
  Company Number: US-PFIZER INC-2012208163

PATIENT
  Sex: Male

DRUGS (6)
  1. ZOLOFT [Suspect]
     Indication: AFFECTIVE DISORDER
  2. SERTRALINE HYDROCHLORIDE [Suspect]
     Indication: DEPRESSION
  3. SERTRALINE HYDROCHLORIDE [Suspect]
     Indication: ANXIETY
     Dosage: UNK
     Route: 064
  4. ZOLOFT [Suspect]
     Indication: DEPRESSION
  5. ZOLOFT [Suspect]
     Indication: ANXIETY
     Dosage: UNK
     Route: 064
  6. SERTRALINE HYDROCHLORIDE [Suspect]
     Indication: AFFECTIVE DISORDER

REACTIONS (2)
  - MULTIPLE CARDIAC DEFECTS [None]
  - MATERNAL EXPOSURE TIMING UNSPECIFIED [None]
